FAERS Safety Report 25419087 (Version 1)
Quarter: 2025Q2

REPORT INFORMATION
  Report Type: Spontaneous
  Country: ES (occurrence: ES)
  Receive Date: 20250610
  Receipt Date: 20250610
  Transmission Date: 20250716
  Serious: Yes (Other)
  Sender: BAUSCH AND LOMB
  Company Number: None

PATIENT
  Age: 34 Year
  Sex: Male

DRUGS (4)
  1. AZATHIOPRINE [Suspect]
     Active Substance: AZATHIOPRINE
     Indication: Behcet^s syndrome
     Dosage: 1 COMIDA,0,5 CENA
     Route: 048
     Dates: start: 20240802, end: 20240820
  2. DEXKETOPROFEN [Concomitant]
     Active Substance: DEXKETOPROFEN
     Indication: Pain
     Route: 048
     Dates: start: 20230428, end: 20250502
  3. PARACETAMOL 1.000 MG 40 COMPRIMIDOS [Concomitant]
     Indication: Pain
     Dosage: 1 COMPRIMIDO CADA 8H
     Route: 048
     Dates: start: 20230428, end: 20240820
  4. METAMIZOL SODIUM [Concomitant]
     Active Substance: METAMIZOL SODIUM
     Indication: Pain
     Route: 048
     Dates: start: 20240813, end: 20240820

REACTIONS (1)
  - Hepatitis cholestatic [Recovered/Resolved]

NARRATIVE: CASE EVENT DATE: 20240817
